FAERS Safety Report 25203382 (Version 1)
Quarter: 2025Q2

REPORT INFORMATION
  Report Type: Spontaneous
  Country: US (occurrence: None)
  Receive Date: 20250416
  Receipt Date: 20250416
  Transmission Date: 20250717
  Serious: Yes (Disabling, Other)
  Sender: FDA-CTU
  Company Number: None

PATIENT
  Age: 31 Year
  Sex: Female
  Weight: 90 kg

DRUGS (1)
  1. EMGALITY [Suspect]
     Active Substance: GALCANEZUMAB-GNLM
     Indication: Migraine
     Route: 058
     Dates: start: 20250227, end: 20250327

REACTIONS (10)
  - Peripheral swelling [None]
  - Peripheral swelling [None]
  - Skin discolouration [None]
  - Swelling face [None]
  - Arthralgia [None]
  - Grip strength decreased [None]
  - Flushing [None]
  - Fatigue [None]
  - Temperature regulation disorder [None]
  - Cardiovascular disorder [None]

NARRATIVE: CASE EVENT DATE: 20250303
